FAERS Safety Report 16103675 (Version 1)
Quarter: 2019Q1

REPORT INFORMATION
  Report Type: Spontaneous
  Country: US (occurrence: US)
  Receive Date: 20190322
  Receipt Date: 20190322
  Transmission Date: 20190418
  Serious: Yes (Other)
  Sender: FDA-Public Use
  Company Number: US-ROCHE-2285480

PATIENT
  Sex: Female
  Weight: 71.28 kg

DRUGS (7)
  1. ACTEMRA [Suspect]
     Active Substance: TOCILIZUMAB
     Indication: RHEUMATOID ARTHRITIS
     Dosage: ONGOING: NO
     Route: 058
     Dates: start: 2016, end: 2018
  2. CELEBREX [Concomitant]
     Active Substance: CELECOXIB
     Dosage: ONGOING: NO
     Route: 065
  3. RITUXAN [Suspect]
     Active Substance: RITUXIMAB
     Indication: RHEUMATOID ARTHRITIS
     Dosage: ONGOING: NO
     Route: 065
  4. METHOTREXATE. [Concomitant]
     Active Substance: METHOTREXATE
     Dosage: ONGOING: NO
     Route: 065
  5. ACTEMRA [Suspect]
     Active Substance: TOCILIZUMAB
     Dosage: ONGOING: NO
     Route: 058
     Dates: start: 2018, end: 2018
  6. TYLENOL [Concomitant]
     Active Substance: ACETAMINOPHEN
     Dosage: ONGOING: YES
     Route: 065
  7. ACTEMRA [Suspect]
     Active Substance: TOCILIZUMAB
     Dosage: ONGOING: YES
     Route: 058
     Dates: start: 20190213

REACTIONS (3)
  - Finger deformity [Recovered/Resolved]
  - Varicose vein [Unknown]
  - Bronchitis [Unknown]
